FAERS Safety Report 9888844 (Version 3)
Quarter: 2014Q1

REPORT INFORMATION
  Report Type: Spontaneous
  Country: US (occurrence: US)
  Receive Date: 20140211
  Receipt Date: 20140214
  Transmission Date: 20141002
  Serious: Yes (Death, Hospitalization, Other)
  Sender: FDA-Public Use
  Company Number: US-BAXTER-2014BAX005384

PATIENT
  Sex: Male

DRUGS (3)
  1. DIANEAL LOW CALCIUM [Suspect]
     Indication: PERITONEAL DIALYSIS
     Route: 033
     Dates: start: 2007, end: 20140202
  2. DIANEAL LOW CALCIUM [Suspect]
     Indication: PERITONEAL DIALYSIS
     Route: 033
     Dates: start: 2007, end: 20140202
  3. EXTRANEAL [Suspect]
     Indication: PERITONEAL DIALYSIS
     Route: 033
     Dates: start: 2007, end: 20140202

REACTIONS (6)
  - Cardiac failure [Fatal]
  - Cardiac arrest [Fatal]
  - Osteomyelitis [Recovering/Resolving]
  - Myocardial infarction [Recovered/Resolved]
  - Peritonitis [Recovered/Resolved]
  - Ultrafiltration failure [Unknown]
